FAERS Safety Report 17683380 (Version 1)
Quarter: 2020Q2

REPORT INFORMATION
  Report Type: Spontaneous
  Country: US (occurrence: US)
  Receive Date: 20200420
  Receipt Date: 20200420
  Transmission Date: 20200714
  Serious: Yes (Other)
  Sender: FDA-Public Use
  Company Number: US-TEVA-2020-US-1223870

PATIENT
  Sex: Male

DRUGS (1)
  1. FENTANYL. [Suspect]
     Active Substance: FENTANYL
     Indication: PRODUCT USED FOR UNKNOWN INDICATION
     Dosage: FORM STRENGTH UNKNOWN
     Route: 065

REACTIONS (7)
  - Feeding disorder [Unknown]
  - Dyspepsia [Unknown]
  - Tooth fracture [Unknown]
  - Abdominal pain upper [Unknown]
  - Drug dependence [Unknown]
  - Spinal nerve stimulator implantation [Unknown]
  - Gastrooesophageal reflux disease [Unknown]
